FAERS Safety Report 6284093-5 (Version None)
Quarter: 2009Q3

REPORT INFORMATION
  Report Type: 
  Country: None (occurrence: None)
  Receive Date: 20090722
  Receipt Date: 20090710
  Transmission Date: 20100115
  Serious: Yes (Other)
  Sender: FDA-Public Use
  Company Number: DSA_33997_2009

PATIENT
  Sex: Male

DRUGS (11)
  1. XENAZINE [Suspect]
     Indication: HUNTINGTON'S CHOREA
     Dosage: (12.5 MG QID), (12.5 MG IN AM AND NOON; 25 MG LATE AFTERNOON; 25 MG AT BEDTIME), (DF)
     Dates: start: 20090501, end: 20090501
  2. XENAZINE [Suspect]
     Indication: HUNTINGTON'S CHOREA
     Dosage: (12.5 MG QID), (12.5 MG IN AM AND NOON; 25 MG LATE AFTERNOON; 25 MG AT BEDTIME), (DF)
     Dates: start: 20090501, end: 20090601
  3. XENAZINE [Suspect]
     Indication: HUNTINGTON'S CHOREA
     Dosage: (12.5 MG QID), (12.5 MG IN AM AND NOON; 25 MG LATE AFTERNOON; 25 MG AT BEDTIME), (DF)
     Dates: start: 20090604, end: 20090706
  4. HALDOL [Concomitant]
  5. TRIAMCINOLONE [Concomitant]
  6. BACLOFEN [Concomitant]
  7. ATIVAN [Concomitant]
  8. COLACE [Concomitant]
  9. POLYETHYLENE GLYCOL [Concomitant]
  10. GLYCERIN [Concomitant]
  11. TYLENOL (CAPLET) [Concomitant]

REACTIONS (5)
  - AGGRESSION [None]
  - ANGER [None]
  - MOOD ALTERED [None]
  - SUICIDAL IDEATION [None]
  - VERBAL ABUSE [None]
